FAERS Safety Report 8311939-9 (Version None)
Quarter: 2012Q2

REPORT INFORMATION
  Report Type: 
  Country: None (occurrence: None)
  Receive Date: 20120425
  Receipt Date: 20120418
  Transmission Date: 20120825
  Serious: Yes (Hospitalization)
  Sender: FDA-Public Use
  Company Number: US-CELGENEUS-163-CCAZA-11093806

PATIENT
  Sex: Male
  Weight: 100.7 kg

DRUGS (3)
  1. AZACITIDINE [Suspect]
     Dosage: 75 MILLIGRAM/SQ. METER
     Route: 058
     Dates: start: 20110912, end: 20110918
  2. TYLENOL (CAPLET) [Concomitant]
  3. AZACITIDINE [Suspect]
     Dosage: 75 MILLIGRAM/SQ. METER
     Route: 058
     Dates: start: 20110812, end: 20110818

REACTIONS (1)
  - TENDON RUPTURE [None]
